FAERS Safety Report 25454251 (Version 1)
Quarter: 2025Q2

REPORT INFORMATION
  Report Type: Report from Study
  Country: US (occurrence: US)
  Receive Date: 20250619
  Receipt Date: 20250619
  Transmission Date: 20250716
  Serious: Yes (Death, Other)
  Sender: ACADIA PHARMACEUTICALS
  Company Number: US-ACADIA PHARMACEUTICALS INC.-ACA-2025-PIM-007072

PATIENT
  Age: 84 Year
  Sex: Male

DRUGS (9)
  1. NUPLAZID [Suspect]
     Active Substance: PIMAVANSERIN TARTRATE
     Indication: Parkinson^s disease
     Dosage: 34 MILLIGRAM, QD
     Route: 048
     Dates: start: 20240213, end: 202502
  2. TYLENOL [Concomitant]
     Active Substance: ACETAMINOPHEN
  3. CLAVULANATE POTASSIUM [Concomitant]
     Active Substance: CLAVULANATE POTASSIUM
  4. LEVETIRACETAM [Concomitant]
     Active Substance: LEVETIRACETAM
  5. FOLIC ACID [Concomitant]
     Active Substance: FOLIC ACID
  6. MEGESTROL ACETATE [Concomitant]
     Active Substance: MEGESTROL ACETATE
  7. AMANTADINE [Concomitant]
     Active Substance: AMANTADINE
  8. LAMOTRIGINE [Concomitant]
     Active Substance: LAMOTRIGINE
  9. CARBIDOPA\LEVODOPA [Concomitant]
     Active Substance: CARBIDOPA\LEVODOPA

REACTIONS (1)
  - Death [Fatal]

NARRATIVE: CASE EVENT DATE: 20250502
